FAERS Safety Report 10050036 (Version 5)
Quarter: 2015Q2

REPORT INFORMATION
  Report Type: Spontaneous
  Country: US (occurrence: US)
  Receive Date: 20140401
  Receipt Date: 20150629
  Transmission Date: 20150821
  Serious: Yes (Hospitalization, Other)
  Sender: FDA-Public Use
  Company Number: US-BAYER-2014-047075

PATIENT
  Age: 28 Year
  Sex: Female
  Weight: 57 kg

DRUGS (1)
  1. MIRENA [Suspect]
     Active Substance: LEVONORGESTREL
     Indication: CONTRACEPTION
     Dosage: 20 MCG/24HR, CONT
     Route: 015
     Dates: start: 20130923, end: 20140228

REACTIONS (17)
  - Anxiety [None]
  - Gait disturbance [None]
  - Uterine perforation [Recovered/Resolved]
  - Nausea [None]
  - Tinnitus [None]
  - Genital haemorrhage [None]
  - Hyperhidrosis [None]
  - Vaginal haemorrhage [Recovered/Resolved]
  - Back pain [Recovered/Resolved]
  - Emotional distress [None]
  - Scar [None]
  - Device dislocation [Recovered/Resolved]
  - Dizziness [None]
  - Injury [Recovered/Resolved]
  - Abdominal pain [Recovered/Resolved]
  - Pelvic pain [Recovered/Resolved]
  - Depression [None]

NARRATIVE: CASE EVENT DATE: 2013
